FAERS Safety Report 26180509 (Version 1)
Quarter: 2025Q4

REPORT INFORMATION
  Report Type: Report from Study
  Country: US (occurrence: US)
  Receive Date: 20251219
  Receipt Date: 20251219
  Transmission Date: 20260118
  Serious: Yes (Other)
  Sender: ABBVIE
  Company Number: US-JNJFOC-20251216952

PATIENT

DRUGS (2)
  1. IBRUTINIB [Suspect]
     Active Substance: IBRUTINIB
     Indication: Central nervous system lymphoma
     Route: 048
  2. EMAVUSERTIB [Suspect]
     Active Substance: EMAVUSERTIB
     Indication: Central nervous system lymphoma
     Route: 065

REACTIONS (6)
  - Leukopenia [Unknown]
  - Amylase increased [Unknown]
  - Lipase increased [Unknown]
  - Therapeutic response unexpected [Unknown]
  - Neutropenia [Unknown]
  - Off label use [Unknown]
